FAERS Safety Report 7746431-3 (Version None)
Quarter: 2011Q3

REPORT INFORMATION
  Report Type: 
  Country: None (occurrence: None)
  Receive Date: 20110913
  Receipt Date: 20110901
  Transmission Date: 20111222
  Serious: Yes (Other)
  Sender: FDA-Public Use
  Company Number: US-ASTRAZENECA-2011SE30492

PATIENT
  Age: 48 Year
  Sex: Male
  Weight: 108.9 kg

DRUGS (6)
  1. LISINOPRIL [Concomitant]
  2. SEROQUEL [Suspect]
     Route: 048
  3. ULTRAM [Concomitant]
  4. SEROQUEL [Suspect]
     Indication: LOSS OF CONSCIOUSNESS
     Route: 048
  5. FLAMATIL [Concomitant]
  6. ATACAND HCT [Suspect]
     Indication: HYPERTENSION
     Dosage: 32 MG DAILY
     Route: 048

REACTIONS (5)
  - HYPERTENSION [None]
  - DRUG DOSE OMISSION [None]
  - CHEST PAIN [None]
  - CONVULSION [None]
  - DRUG INEFFECTIVE [None]
